FAERS Safety Report 4727540-X (Version None)
Quarter: 2005Q3

REPORT INFORMATION
  Report Type: 
  Country: None (occurrence: None)
  Receive Date: 20050712
  Receipt Date: 20050712
  Transmission Date: 20060218
  Serious: Yes (Other)
  Sender: FDA-Public Use
  Company Number: None

PATIENT
  Age: 52 Year
  Sex: Female
  Weight: 61.2356 kg

DRUGS (2)
  1. LABETALOL 100 MG EON [Suspect]
     Indication: BLOOD PRESSURE
     Dosage: 1 QD
     Dates: start: 20050709, end: 20050711
  2. ORPHENADRINE ER 100 MG EON [Suspect]
     Indication: MUSCLE RELAXANT THERAPY
     Dosage: 1 BID

REACTIONS (1)
  - MEDICATION ERROR [None]
